FAERS Safety Report 8598155-0 (Version None)
Quarter: 2012Q3

REPORT INFORMATION
  Report Type: 
  Country: None (occurrence: None)
  Receive Date: 20120816
  Receipt Date: 20120807
  Transmission Date: 20120928
  Serious: No
  Sender: FDA-Public Use
  Company Number: US-B.I. PHARMACEUTICALS,INC./RIDGEFIELD-2012-BP-17806BP

PATIENT
  Sex: Female

DRUGS (17)
  1. MAGNESIUM ASPARTATE [Concomitant]
     Indication: PROPHYLAXIS
  2. LECITHIN [Concomitant]
     Route: 048
  3. PAPAYA PINEAPPLE ENZYMES [Concomitant]
     Indication: ABDOMINAL DISCOMFORT
  4. METHENAMINE HIPPURATE [Concomitant]
     Indication: PROPHYLAXIS URINARY TRACT INFECTION
     Dosage: 1 G
  5. CITRACAL/VITAMIN D [Concomitant]
     Indication: PROPHYLAXIS
  6. BIOTIN [Concomitant]
     Dosage: 500 MCG
  7. TURMERIC POWD [Concomitant]
     Indication: PAIN
  8. LIPITOR [Suspect]
     Dosage: 20 MG
     Dates: start: 20030522, end: 20111101
  9. CHROMIUM PICOLINATE [Concomitant]
     Dosage: 400 MCG
  10. BIOFREEZE [Concomitant]
     Route: 061
  11. MOBIC [Suspect]
     Dosage: 7.5 MG
     Dates: end: 20111101
  12. FLAX SEEDS POWD [Concomitant]
  13. VITAMIN B-12 [Concomitant]
     Dosage: 500 MCG
  14. VALERIAN [Concomitant]
     Indication: STRESS
  15. HEMP HEARTS [Concomitant]
  16. VALERIAN ROOT [Concomitant]
     Indication: STRESS
  17. KELP [Concomitant]
     Dosage: 150 MCG

REACTIONS (15)
  - AMNESIA [None]
  - MUSCLE SPASMS [None]
  - FALL [None]
  - APHONIA [None]
  - BLOOD GLUCOSE INCREASED [None]
  - ARTHRALGIA [None]
  - MYALGIA [None]
  - RASH PRURITIC [None]
  - URTICARIA [None]
  - EYE DISORDER [None]
  - DRY EYE [None]
  - LIMB OPERATION [None]
  - SHOULDER OPERATION [None]
  - AKINESIA [None]
  - LOSS OF CONSCIOUSNESS [None]
